FAERS Safety Report 5527438-3 (Version None)
Quarter: 2007Q4

REPORT INFORMATION
  Report Type: 
  Country: None (occurrence: None)
  Receive Date: 20071123
  Receipt Date: 20071112
  Transmission Date: 20080405
  Serious: Yes (Hospitalization)
  Sender: FDA-Public Use
  Company Number: 230125J07USA

PATIENT
  Age: 44 Year
  Sex: Female
  Weight: 51.2565 kg

DRUGS (7)
  1. REBIF [Suspect]
     Indication: MULTIPLE SCLEROSIS
     Dosage: 44 MCG, 3 IN 1 WEEKS, SUBCUTANEOUS
     Route: 058
     Dates: start: 20070613
  2. ASMANEX TWISTHALER [Concomitant]
  3. SINGULAIR (MONTELUKAST /01362601/) [Concomitant]
  4. PULMICORT [Concomitant]
  5. TYLENOL W/ CODEINE NO. 3 [Concomitant]
  6. XOPENEX [Concomitant]
  7. ALBUTEROL (SALBUTAMOL /00139501/) [Concomitant]

REACTIONS (8)
  - ASTHMA [None]
  - BLOOD PRESSURE INCREASED [None]
  - HEART RATE INCREASED [None]
  - LOSS OF CONSCIOUSNESS [None]
  - MULTIPLE SCLEROSIS [None]
  - NO THERAPEUTIC RESPONSE [None]
  - RED BLOOD CELL COUNT DECREASED [None]
  - WHITE BLOOD CELL COUNT DECREASED [None]
